FAERS Safety Report 13768391 (Version 1)
Quarter: 2017Q3

REPORT INFORMATION
  Report Type: Spontaneous
  Country: FR (occurrence: FR)
  Receive Date: 20170719
  Receipt Date: 20170719
  Transmission Date: 20171127
  Serious: Yes (Hospitalization)
  Sender: FDA-Public Use
  Company Number: FR-AMGEN-FRASP2017106980

PATIENT
  Age: 53 Year
  Sex: Male

DRUGS (16)
  1. KYPROLIS [Suspect]
     Active Substance: CARFILZOMIB
     Indication: PLASMA CELL MYELOMA
     Dosage: 43 MICROG (PERFUSION 1 AND 2) THEN 58
     Route: 042
     Dates: start: 20170210, end: 20170224
  2. ISOPHANE INSULIN [Concomitant]
     Active Substance: INSULIN NOS
     Dosage: UNK
  3. BROMAZEPAM [Concomitant]
     Active Substance: BROMAZEPAM
     Dosage: UNK
  4. PERINDOPRIL [Concomitant]
     Active Substance: PERINDOPRIL
     Dosage: UNK
  5. ZELITREX [Concomitant]
     Active Substance: VALACYCLOVIR HYDROCHLORIDE
     Dosage: UNK
  6. PRIMPERAN [Concomitant]
     Active Substance: METOCLOPRAMIDE HYDROCHLORIDE
     Dosage: UNK
  7. IMOVANE [Concomitant]
     Active Substance: ZOPICLONE
     Dosage: UNK
  8. TIORFAN [Concomitant]
     Active Substance: RACECADOTRIL
     Dosage: UNK
  9. REVLIMID [Suspect]
     Active Substance: LENALIDOMIDE
     Indication: PLASMA CELL MYELOMA
     Dosage: 25 MG, UNK
     Route: 048
     Dates: start: 20161102, end: 20170302
  10. PANTOPRAZOLE [Concomitant]
     Active Substance: PANTOPRAZOLE
     Dosage: UNK
  11. LOVENOX [Concomitant]
     Active Substance: ENOXAPARIN SODIUM
     Dosage: UNK
  12. ACTISKENAN [Concomitant]
     Active Substance: MORPHINE SULFATE
     Dosage: UNK
  13. DAFALGAN [Concomitant]
     Active Substance: ACETAMINOPHEN
     Dosage: UNK
  14. LYRICA [Concomitant]
     Active Substance: PREGABALIN
     Dosage: UNK
  15. NEFOPAM [Concomitant]
     Active Substance: NEFOPAM
     Dosage: UNK
  16. XATRAL [Concomitant]
     Active Substance: ALFUZOSIN
     Dosage: UNK

REACTIONS (3)
  - Atrioventricular block [Recovered/Resolved with Sequelae]
  - Ejection fraction decreased [Unknown]
  - Generalised oedema [Recovered/Resolved]

NARRATIVE: CASE EVENT DATE: 20170317
